FAERS Safety Report 5927919-4 (Version None)
Quarter: 2008Q4

REPORT INFORMATION
  Report Type: 
  Country: None (occurrence: None)
  Receive Date: 20081021
  Receipt Date: 20081014
  Transmission Date: 20090506
  Serious: Yes (Hospitalization)
  Sender: FDA-Public Use
  Company Number: 2008AL011229

PATIENT
  Sex: Female

DRUGS (2)
  1. DIGOXIN [Suspect]
     Dosage: PO
     Route: 048
     Dates: start: 20080325, end: 20080430
  2. WARFARIN SODIUM [Concomitant]

REACTIONS (9)
  - ANXIETY [None]
  - CARDIOVASCULAR DISORDER [None]
  - CONDITION AGGRAVATED [None]
  - DRUG TOXICITY [None]
  - ECONOMIC PROBLEM [None]
  - EMOTIONAL DISORDER [None]
  - INJURY [None]
  - OVERDOSE [None]
  - PAIN [None]
